FAERS Safety Report 5114707-4 (Version None)
Quarter: 2006Q3

REPORT INFORMATION
  Report Type: 
  Country: None (occurrence: None)
  Receive Date: 20060926
  Receipt Date: 20060914
  Transmission Date: 20061208
  Serious: Yes (Hospitalization)
  Sender: FDA-Public Use
  Company Number: IT-ROCHE-462901

PATIENT
  Age: 65 Year
  Sex: Female

DRUGS (2)
  1. MYCOPHENOLATE MOFETIL [Suspect]
     Route: 048
     Dates: start: 20060706
  2. FK506 [Suspect]
     Route: 048
     Dates: start: 20060706

REACTIONS (1)
  - RENAL IMPAIRMENT [None]
